FAERS Safety Report 5867315-1 (Version None)
Quarter: 2008Q3

REPORT INFORMATION
  Report Type: 
  Country: None (occurrence: None)
  Receive Date: 20080902
  Receipt Date: 20080828
  Transmission Date: 20090109
  Serious: Yes (Hospitalization)
  Sender: FDA-Public Use
  Company Number: JP-JNJFOC-20080705733

PATIENT
  Age: 6 Decade
  Sex: Female

DRUGS (2)
  1. ITRIZOLE [Suspect]
     Indication: DRUG USE FOR UNKNOWN INDICATION
     Route: 048
  2. SALIVEHT [Concomitant]
     Route: 065

REACTIONS (1)
  - ERYTHEMA MULTIFORME [None]
